FAERS Safety Report 7481386-0 (Version None)
Quarter: 2011Q2

REPORT INFORMATION
  Report Type: 
  Country: None (occurrence: None)
  Receive Date: 20110516
  Receipt Date: 20110509
  Transmission Date: 20111010
  Serious: Yes (Other)
  Sender: FDA-Public Use
  Company Number: JP-CEPHALON-2011000939

PATIENT
  Sex: Male

DRUGS (3)
  1. TRISENOX [Suspect]
     Route: 041
     Dates: start: 20101025, end: 20110227
  2. FRAGMIN [Concomitant]
     Route: 042
     Dates: start: 20101025, end: 20101031
  3. CEFOPERAZONE SODIUM [Concomitant]
     Route: 042
     Dates: start: 20101105, end: 20101111

REACTIONS (2)
  - CONJUNCTIVAL DISORDER [None]
  - CORNEAL DISORDER [None]
